FAERS Safety Report 10985816 (Version 1)
Quarter: 2015Q2

REPORT INFORMATION
  Report Type: Spontaneous
  Country: US (occurrence: US)
  Receive Date: 20150404
  Receipt Date: 20150404
  Transmission Date: 20150821
  Serious: No
  Sender: FDA-Public Use
  Company Number: US-SA-2014SA087855

PATIENT
  Age: 79 Year
  Sex: Male

DRUGS (1)
  1. ALLEGRA-D [Suspect]
     Active Substance: FEXOFENADINE\PSEUDOEPHEDRINE
     Dosage: TAKEN FROM -RECENT, FREQUENCY- 1-2 TIMES
     Route: 048

REACTIONS (6)
  - Balance disorder [Unknown]
  - Labelled drug-food interaction medication error [Unknown]
  - Constipation [Unknown]
  - Dizziness [Unknown]
  - Dyspnoea [Unknown]
  - Thirst [Unknown]
